FAERS Safety Report 8847397 (Version 2)
Quarter: 2012Q4

REPORT INFORMATION
  Report Type: 
  Country: DK (occurrence: DK)
  Receive Date: 20121018
  Receipt Date: 20121029
  Transmission Date: 20130627
  Serious: Yes (Death)
  Sender: FDA-Public Use
  Company Number: DK-TEVA-363905ISR

PATIENT
  Age: 78 Year
  Sex: Female

DRUGS (4)
  1. METFORMIN [Suspect]
     Indication: TYPE 2 DIABETES MELLITUS
     Dosage: 3 Gram Daily; 3 g/24h
     Route: 065
  2. DIGOXIN [Concomitant]
     Route: 065
  3. WARFARIN [Concomitant]
     Route: 065
  4. ANTIHYPERTENSIVE DRUG [Concomitant]

REACTIONS (2)
  - Lactic acidosis [Fatal]
  - Cardiac failure acute [Fatal]
